FAERS Safety Report 4986303-0 (Version None)
Quarter: 2006Q1

REPORT INFORMATION
  Report Type: 
  Country: None (occurrence: None)
  Receive Date: 20060309
  Receipt Date: 20051013
  Transmission Date: 20060701
  Serious: Yes (Other)
  Sender: FDA-Public Use
  Company Number: 421432

PATIENT

DRUGS (3)
  1. ISOTRETINOIN [Suspect]
     Indication: DRUG USE FOR UNKNOWN INDICATION
     Dates: start: 20030524
  2. ORAL CONTRACEPTIVE PILL (ORAL CONTRACEPTIVE NOS) [Concomitant]
  3. CONTRACEPTIVE NOS (CONTRACEPTIVE NOS) [Concomitant]

REACTIONS (1)
  - ABORTION SPONTANEOUS [None]
